FAERS Safety Report 8593224-3 (Version None)
Quarter: 2012Q3

REPORT INFORMATION
  Report Type: 
  Country: None (occurrence: None)
  Receive Date: 20120814
  Receipt Date: 20120802
  Transmission Date: 20120928
  Serious: No
  Sender: FDA-Public Use
  Company Number: US-ASTRAZENECA-2012SE54824

PATIENT
  Sex: Male

DRUGS (2)
  1. SYMBICORT [Suspect]
     Indication: ASTHMA
     Dosage: 160/ 4.5 MCG, TWO PUFFS TWICE DAILY
     Route: 055
  2. SYMBICORT [Suspect]
     Dosage: 160/ 4.5 MCG, TWO PUFFS ONCE A DAY
     Route: 055

REACTIONS (3)
  - INTENTIONAL DRUG MISUSE [None]
  - DYSPNOEA [None]
  - SENSITIVITY OF TEETH [None]
